FAERS Safety Report 13852676 (Version 1)
Quarter: 2017Q3

REPORT INFORMATION
  Report Type: Spontaneous
  Country: US (occurrence: US)
  Receive Date: 20170809
  Receipt Date: 20170809
  Transmission Date: 20171127
  Serious: No
  Sender: FDA-Public Use
  Company Number: US-ROCHE-640334

PATIENT
  Age: 55 Year
  Sex: Female

DRUGS (1)
  1. BONIVA [Suspect]
     Active Substance: IBANDRONATE SODIUM
     Indication: OSTEOPOROSIS
     Route: 065

REACTIONS (7)
  - Cold sweat [Recovering/Resolving]
  - Gait disturbance [Recovering/Resolving]
  - Paraesthesia [Recovering/Resolving]
  - Thinking abnormal [Recovering/Resolving]
  - Palpitations [Recovering/Resolving]
  - Feeling cold [Unknown]
  - Hypoaesthesia oral [Recovering/Resolving]
